FAERS Safety Report 10018319 (Version 1)
Quarter: 2014Q1

REPORT INFORMATION
  Report Type: Spontaneous
  Country: US (occurrence: US)
  Receive Date: 20140318
  Receipt Date: 20140318
  Transmission Date: 20141002
  Serious: Yes (Other)
  Sender: FDA-Public Use
  Company Number: US-BRISTOL-MYERS SQUIBB COMPANY-20029013

PATIENT
  Age: 4 Decade
  Sex: Male

DRUGS (4)
  1. ERBITUX [Suspect]
     Indication: COLORECTAL CANCER
     Route: 042
  2. FOLINIC ACID [Suspect]
     Indication: COLORECTAL CANCER
  3. 5-FLUOROURACIL [Suspect]
     Indication: COLORECTAL CANCER
  4. IRINOTECAN [Suspect]
     Indication: COLORECTAL CANCER

REACTIONS (1)
  - Rash pustular [Not Recovered/Not Resolved]
